FAERS Safety Report 5519706-6 (Version None)
Quarter: 2007Q4

REPORT INFORMATION
  Report Type: 
  Country: None (occurrence: None)
  Receive Date: 20071116
  Receipt Date: 20071109
  Transmission Date: 20080405
  Serious: Yes (Death)
  Sender: FDA-Public Use
  Company Number: JP-BRISTOL-MYERS SQUIBB COMPANY-13984489

PATIENT
  Age: 38 Year
  Sex: Female

DRUGS (7)
  1. ABILIFY [Suspect]
     Route: 048
  2. PEROSPIRONE [Concomitant]
     Route: 048
  3. CHLORPROMAZINE HCL [Concomitant]
  4. CHLORPROMAZINE + PROMETHAZINE [Concomitant]
     Route: 048
  5. QUAZEPAM [Concomitant]
     Route: 048
  6. BEZAFIBRATE [Concomitant]
     Route: 048
  7. CARBAMAZEPINE [Concomitant]
     Route: 048

REACTIONS (1)
  - SUDDEN DEATH [None]
